FAERS Safety Report 7075671-4 (Version None)
Quarter: 2010Q4

REPORT INFORMATION
  Report Type: 
  Country: None (occurrence: None)
  Receive Date: 20101031
  Receipt Date: 20101027
  Transmission Date: 20110411
  Serious: Yes (Hospitalization)
  Sender: FDA-Public Use
  Company Number: US-WYE-H18429910

PATIENT
  Sex: Female

DRUGS (2)
  1. PRISTIQ [Suspect]
     Indication: DEPRESSION
     Dosage: UNKNOWN DOSE DAILY
  2. PRISTIQ [Suspect]
     Dosage: UNKNOWN DOSE EVERY OTHER DAY

REACTIONS (5)
  - ALCOHOLISM [None]
  - DRUG INEFFECTIVE [None]
  - PNEUMONIA [None]
  - TACHYCARDIA [None]
  - WEIGHT DECREASED [None]
